FAERS Safety Report 23241627 (Version 5)
Quarter: 2024Q1

REPORT INFORMATION
  Report Type: Report from Study
  Country: US (occurrence: US)
  Receive Date: 20231129
  Receipt Date: 20240130
  Transmission Date: 20240410
  Serious: Yes (Hospitalization, Disabling, Other)
  Sender: FDA-Public Use
  Company Number: US-MYLANLABS-2023M1125886

PATIENT
  Age: 0 Year
  Sex: Female

DRUGS (9)
  1. SILDENAFIL [Suspect]
     Active Substance: SILDENAFIL
     Indication: Bronchopulmonary dysplasia
     Dosage: 2 MILLIGRAM, BID (ENTERAL)
     Route: 065
     Dates: start: 20231109, end: 20231111
  2. SILDENAFIL [Suspect]
     Active Substance: SILDENAFIL
     Dosage: 3 MILLIGRAM, BID
     Route: 065
     Dates: start: 20231111, end: 20231113
  3. SILDENAFIL [Suspect]
     Active Substance: SILDENAFIL
     Dosage: 5 MILLIGRAM, BID
     Route: 065
     Dates: start: 20231113, end: 20231115
  4. SILDENAFIL [Suspect]
     Active Substance: SILDENAFIL
     Dosage: 6 MILLIGRAM, BID (ENTERAL)
     Route: 065
     Dates: start: 20231115, end: 20231120
  5. HYDROCHLOROTHIAZIDE [Concomitant]
     Active Substance: HYDROCHLOROTHIAZIDE
     Indication: Diabetes insipidus
     Dosage: 2 DOSAGE FORM, QD (2 IN 1 DAY)
     Route: 048
     Dates: start: 20231104, end: 20231120
  6. FUROSEMIDE [Concomitant]
     Active Substance: FUROSEMIDE
     Indication: Bronchopulmonary dysplasia
     Dosage: UNK
     Route: 048
     Dates: start: 20231112, end: 20231120
  7. LORAZEPAM [Concomitant]
     Active Substance: LORAZEPAM
     Dosage: UNK
     Route: 065
  8. SYNTHROID [Concomitant]
     Active Substance: LEVOTHYROXINE SODIUM
     Dosage: UNK
     Route: 065
  9. CHLOROTHIAZIDE [Concomitant]
     Active Substance: CHLOROTHIAZIDE
     Dosage: UNK
     Route: 065

REACTIONS (2)
  - Retinopathy of prematurity [Recovered/Resolved]
  - Retinopathy proliferative [Unknown]

NARRATIVE: CASE EVENT DATE: 20231120
